FAERS Safety Report 5166007-4 (Version None)
Quarter: 2006Q4

REPORT INFORMATION
  Report Type: 
  Country: None (occurrence: None)
  Receive Date: 20061128
  Receipt Date: 20061110
  Transmission Date: 20070319
  Serious: Yes (Other)
  Sender: FDA-Public Use
  Company Number: 2006SP003562

PATIENT
  Age: 50 Year
  Sex: Female

DRUGS (2)
  1. PEG-INTRON [Suspect]
     Indication: HEPATITIS C
     Dosage: SC
     Route: 058
     Dates: start: 20060929
  2. RIBAVIRIN [Suspect]
     Indication: HEPATITIS C
     Dosage: PO
     Route: 048
     Dates: start: 20060929

REACTIONS (18)
  - ASTHENIA [None]
  - CAROTID ARTERY OCCLUSION [None]
  - DEHYDRATION [None]
  - EAR PAIN [None]
  - EPISTAXIS [None]
  - FATIGUE [None]
  - FOOD CRAVING [None]
  - HEADACHE [None]
  - HYPERTENSION [None]
  - LOSS OF CONSCIOUSNESS [None]
  - NASAL MUCOSAL DISORDER [None]
  - NOCTURIA [None]
  - ORTHOSTATIC HYPOTENSION [None]
  - PHARYNGOLARYNGEAL PAIN [None]
  - PRODUCTIVE COUGH [None]
  - SLUGGISHNESS [None]
  - STRESS [None]
  - WEIGHT INCREASED [None]
